FAERS Safety Report 11632890 (Version 2)
Quarter: 2015Q4

REPORT INFORMATION
  Report Type: Spontaneous
  Country: CA (occurrence: CA)
  Receive Date: 20151015
  Receipt Date: 20151026
  Transmission Date: 20160304
  Serious: Yes (Other)
  Sender: FDA-Public Use
  Company Number: CA-BAYER-2015-441391

PATIENT
  Age: 15 Year
  Sex: Female

DRUGS (4)
  1. MEFENAMIC ACID. [Concomitant]
     Active Substance: MEFENAMIC ACID
     Dosage: UNK
     Dates: start: 2015
  2. RESTORALAX [Suspect]
     Active Substance: POLYETHYLENE GLYCOL 3350
     Indication: CONSTIPATION
     Dosage: UNK UNK, QD
     Dates: start: 2012
  3. TRANEXAMIC ACID. [Concomitant]
     Active Substance: TRANEXAMIC ACID
     Dosage: UNK
     Dates: start: 2015
  4. ESTROGEN [Concomitant]
     Active Substance: ESTRONE\SUS SCROFA OVARY
     Dosage: UNK
     Dates: start: 2015

REACTIONS (2)
  - Constipation [Not Recovered/Not Resolved]
  - Off label use [None]

NARRATIVE: CASE EVENT DATE: 201508
